FAERS Safety Report 16661359 (Version 1)
Quarter: 2019Q3

REPORT INFORMATION
  Report Type: Spontaneous
  Country: US (occurrence: US)
  Receive Date: 20190619
  Receipt Date: 20190619
  Transmission Date: 20191004
  Serious: No
  Sender: FDA-Public Use
  Company Number: None

PATIENT
  Sex: Male

DRUGS (1)
  1. SOLIRIS [Suspect]
     Active Substance: ECULIZUMAB
     Indication: NEPHROTIC SYNDROME
     Route: 042
     Dates: start: 20181227, end: 20190502

REACTIONS (5)
  - Transaminases increased [None]
  - Immunosuppression [None]
  - Influenza [None]
  - Bacteraemia [None]
  - Acute kidney injury [None]
